FAERS Safety Report 8499590-1 (Version None)
Quarter: 2012Q3

REPORT INFORMATION
  Report Type: 
  Country: None (occurrence: None)
  Receive Date: 20120710
  Receipt Date: 20120627
  Transmission Date: 20120928
  Serious: Yes (Hospitalization, Other)
  Sender: FDA-Public Use
  Company Number: GB-COVIDIEN/TYCO HEALTHCARE/MALLINCKRODT-T201202665

PATIENT
  Age: 43 Year
  Sex: Female

DRUGS (2)
  1. METHADOSE [Suspect]
     Dosage: 180 MG
  2. ALPRAZOLAM [Suspect]
     Dosage: 15 MG

REACTIONS (9)
  - LEUKOENCEPHALOPATHY [None]
  - HYPOGLYCAEMIA [None]
  - DRUG DIVERSION [None]
  - RENAL TUBULAR NECROSIS [None]
  - HEPATIC FAILURE [None]
  - BRAIN HYPOXIA [None]
  - HYPOPERFUSION [None]
  - PNEUMONIA ASPIRATION [None]
  - OVERDOSE [None]
